FAERS Safety Report 20664297 (Version 1)
Quarter: 2022Q2

REPORT INFORMATION
  Report Type: Spontaneous
  Country: CO (occurrence: CO)
  Receive Date: 20220401
  Receipt Date: 20220401
  Transmission Date: 20220720
  Serious: Yes (Other)
  Sender: FDA-Public Use
  Company Number: CO-AMGEN-COLSP2022052759

PATIENT
  Age: 57 Year
  Sex: Female
  Weight: 66 kg

DRUGS (8)
  1. MVASI [Suspect]
     Active Substance: BEVACIZUMAB-AWWB
     Indication: Colon cancer stage IV
     Dosage: 330 MILLIGRAM, QD
     Route: 042
     Dates: start: 20211126
  2. NEULASTA [Suspect]
     Active Substance: PEGFILGRASTIM
     Indication: Colon cancer stage IV
     Dosage: 6 MILLIGRAM/0.6ML, QD
     Route: 058
     Dates: start: 20211126
  3. FLUOROURACIL [Concomitant]
     Active Substance: FLUOROURACIL
     Indication: Colon cancer stage IV
     Dosage: 220 MILLIGRAM, QD
     Route: 042
     Dates: start: 20211126
  4. OXALIPLATIN [Concomitant]
     Active Substance: OXALIPLATIN
     Indication: Colon cancer stage IV
     Dosage: 500 MILLIGRAM, QD
     Route: 042
     Dates: start: 20211126
  5. LEUCOVORIN CALCIUM [Concomitant]
     Active Substance: LEUCOVORIN CALCIUM
     Indication: Colon cancer stage IV
     Dosage: 100 MILLIGRAM, QD
     Route: 042
     Dates: start: 20211126
  6. FOSAPREPITANT [Concomitant]
     Active Substance: FOSAPREPITANT
     Indication: Colon cancer stage IV
     Dosage: 250 MILLIGRAM, QD
     Route: 042
     Dates: start: 20211126
  7. ONDANSETRON [Concomitant]
     Active Substance: ONDANSETRON
     Indication: Colon cancer stage IV
     Dosage: 100 MILLIGRAM, QD
     Route: 042
     Dates: start: 20211126
  8. DEXAMETHASONE PHOSPHATE [Concomitant]
     Active Substance: DEXAMETHASONE PHOSPHATE
     Indication: Colon cancer stage IV
     Dosage: 50 MILLIGRAM, QD
     Route: 042
     Dates: start: 20211126

REACTIONS (3)
  - Neuropathy peripheral [Recovered/Resolved]
  - Neutropenia [Not Recovered/Not Resolved]
  - Constipation [Not Recovered/Not Resolved]

NARRATIVE: CASE EVENT DATE: 20220210
